FAERS Safety Report 24132170 (Version 2)
Quarter: 2024Q3

REPORT INFORMATION
  Report Type: Spontaneous
  Country: US (occurrence: US)
  Receive Date: 20240724
  Receipt Date: 20240725
  Transmission Date: 20241017
  Serious: Yes (Other)
  Sender: TEVA
  Company Number: US-TEVA-VS-3222023

PATIENT
  Age: 32 Year
  Sex: Female

DRUGS (3)
  1. UZEDY [Suspect]
     Active Substance: RISPERIDONE
     Indication: Schizoaffective disorder bipolar type
     Dosage: 100/0.28 MG/ML
     Route: 065
  2. NALTREXONE [Concomitant]
     Active Substance: NALTREXONE
  3. HALOPERIDOL [Concomitant]
     Active Substance: HALOPERIDOL

REACTIONS (3)
  - Hallucination, auditory [Unknown]
  - Drug ineffective for unapproved indication [Unknown]
  - Off label use [Unknown]
